FAERS Safety Report 6970206-6 (Version None)
Quarter: 2010Q3

REPORT INFORMATION
  Report Type: 
  Country: None (occurrence: None)
  Receive Date: 20100908
  Receipt Date: 20100830
  Transmission Date: 20110219
  Serious: Yes (Death)
  Sender: FDA-Public Use
  Company Number: SE-TEVA-247230ISR

PATIENT
  Age: 20 Year
  Sex: Male

DRUGS (2)
  1. CITALOPRAM HYDROBROMIDE [Suspect]
  2. OXYBATE SODIUM [Suspect]

REACTIONS (3)
  - DRUG ABUSE [None]
  - OVERDOSE [None]
  - POISONING [None]
